FAERS Safety Report 6072815-8 (Version None)
Quarter: 2009Q1

REPORT INFORMATION
  Report Type: 
  Country: None (occurrence: None)
  Receive Date: 20090210
  Receipt Date: 20090130
  Transmission Date: 20090719
  Serious: Yes (Other)
  Sender: FDA-Public Use
  Company Number: NL-BAUSCH-2008BL005292

PATIENT

DRUGS (2)
  1. TROPICAMIDE [Suspect]
     Indication: SURGERY
     Route: 047
     Dates: start: 20081212, end: 20081212
  2. BENOXINATE HYDROCHLORIDE [Suspect]
     Indication: SURGERY
     Route: 047
     Dates: start: 20081212, end: 20081212

REACTIONS (1)
  - CORNEAL DISORDER [None]
